FAERS Safety Report 4300836-1 (Version None)
Quarter: 2004Q1

REPORT INFORMATION
  Report Type: 
  Country: None (occurrence: None)
  Receive Date: 20040220
  Receipt Date: 20040210
  Transmission Date: 20041129
  Serious: Yes (Other)
  Sender: FDA-Public Use
  Company Number: WAES 0402PRT00001

PATIENT
  Age: 75 Year
  Sex: Female
  Weight: 55 kg

DRUGS (8)
  1. FOSAMAX [Suspect]
     Indication: OSTEOPOROSIS
     Route: 048
     Dates: start: 20031201, end: 20030101
  2. FOSAMAX [Suspect]
     Route: 048
  3. BACTERIAL LYSATES (UNSPECIFIED) [Concomitant]
     Dates: start: 20031001, end: 20031201
  4. CALCIFEDIOL [Concomitant]
  5. CLOPIDOGREL BISULFATE [Concomitant]
     Route: 048
     Dates: start: 20031101
  6. DIMETHINDENE MALEATE AND PHENYLEPHRINE [Concomitant]
     Route: 055
  7. ESOMEPRAZOLE MAGNESIUM [Concomitant]
     Route: 048
     Dates: start: 20030101
  8. LOSARTAN POTASSIUM [Concomitant]
     Route: 048

REACTIONS (3)
  - GLOSSODYNIA [None]
  - PARAESTHESIA ORAL [None]
  - TONGUE OEDEMA [None]
